FAERS Safety Report 12609637 (Version 2)
Quarter: 2016Q3

REPORT INFORMATION
  Report Type: Spontaneous
  Country: FR (occurrence: FR)
  Receive Date: 20160801
  Receipt Date: 20160829
  Transmission Date: 20161109
  Serious: Yes (Other)
  Sender: FDA-Public Use
  Company Number: FR-ACCORD-042639

PATIENT
  Age: 47 Year
  Sex: Male

DRUGS (6)
  1. TACROLIMUS. [Suspect]
     Active Substance: TACROLIMUS
     Indication: HEART TRANSPLANT
     Dosage: DECREASED TACROLIMUS 4 MG/DAY?DABRAFENIB WAS STOPPED SO DOSES OF TACROLIMUS WAS GRADUALLY DECREAS
  2. DABRAFENIB [Interacting]
     Active Substance: DABRAFENIB
     Indication: PRODUCT USED FOR UNKNOWN INDICATION
     Dosage: REINTRODUCE DABRAFENIB AT A FULL?DOSE AND TO INCREASE THE DOSAGE OF IMMUNOSUPPRESSANTS
  3. EVEROLIMUS [Interacting]
     Active Substance: EVEROLIMUS
     Indication: HEART TRANSPLANT
     Dosage: DABRAFENIB WAS STOPPED SO DOSES OF EVEROLIMUS WAS GRADUALLY DECREASED.??INCREASED DOSE OF 10 MG/DA
     Dates: start: 201301
  4. MYCOPHENOLIC ACID. [Concomitant]
     Active Substance: MYCOPHENOLIC ACID
     Indication: HEART TRANSPLANT
  5. PREDNISONE. [Concomitant]
     Active Substance: PREDNISONE
     Indication: HEART TRANSPLANT
  6. VEMURAFENIB [Concomitant]
     Active Substance: VEMURAFENIB
     Indication: METASTATIC MALIGNANT MELANOMA

REACTIONS (2)
  - Disease progression [Unknown]
  - Drug interaction [Unknown]
